FAERS Safety Report 15536575 (Version 1)
Quarter: 2018Q4

REPORT INFORMATION
  Report Type: Spontaneous
  Country: JP (occurrence: JP)
  Receive Date: 20181022
  Receipt Date: 20181022
  Transmission Date: 20190205
  Serious: Yes (Death, Other)
  Sender: FDA-Public Use
  Company Number: PHHY2018JP127512

PATIENT
  Age: 73 Year
  Sex: Female
  Weight: 52 kg

DRUGS (1)
  1. MEDROXYPROGESTERONE [Suspect]
     Active Substance: MEDROXYPROGESTERONE
     Indication: MULTIPLE CUTANEOUS AND UTERINE LEIOMYOMATOSIS
     Dosage: 600 MG, QD
     Route: 065

REACTIONS (6)
  - Neoplasm progression [Fatal]
  - Product use in unapproved indication [Unknown]
  - Tumour haemorrhage [Fatal]
  - Renal impairment [Unknown]
  - Multiple cutaneous and uterine leiomyomatosis [Fatal]
  - Malignant neoplasm progression [Fatal]
